FAERS Safety Report 21947631 (Version 1)
Quarter: 2023Q1

REPORT INFORMATION
  Report Type: Spontaneous
  Country: AU (occurrence: AU)
  Receive Date: 20230202
  Receipt Date: 20230202
  Transmission Date: 20230418
  Serious: Yes (Other)
  Sender: FDA-Public Use
  Company Number: AU-CIPLA LTD.-2023AU00499

PATIENT

DRUGS (1)
  1. ESCITALOPRAM [Suspect]
     Active Substance: ESCITALOPRAM OXALATE
     Indication: Product used for unknown indication
     Dosage: 20 MILLIGRAM, UNK
     Route: 065

REACTIONS (9)
  - Perinatal depression [Unknown]
  - Condition aggravated [Unknown]
  - Depressed mood [Recovering/Resolving]
  - Decreased interest [Unknown]
  - Apathy [Recovering/Resolving]
  - Sleep disorder [Unknown]
  - Vision blurred [Unknown]
  - Headache [Unknown]
  - Fatigue [Unknown]
